FAERS Safety Report 20531548 (Version 1)
Quarter: 2022Q1

REPORT INFORMATION
  Report Type: Spontaneous
  Country: US (occurrence: US)
  Receive Date: 20220301
  Receipt Date: 20220301
  Transmission Date: 20220423
  Serious: No
  Sender: FDA-Public Use
  Company Number: US-GSKCCFUS-Case-01304666_AE-75993

PATIENT
  Sex: Female

DRUGS (1)
  1. BENLYSTA [Suspect]
     Active Substance: BELIMUMAB
     Indication: Product used for unknown indication
     Dosage: UNK
     Dates: start: 20220221

REACTIONS (13)
  - Thermal burn [Recovered/Resolved]
  - Pain in extremity [Recovered/Resolved]
  - Arthralgia [Unknown]
  - Gait disturbance [Not Recovered/Not Resolved]
  - Mobility decreased [Not Recovered/Not Resolved]
  - Lethargy [Unknown]
  - Fatigue [Unknown]
  - Decreased interest [Unknown]
  - Decreased appetite [Unknown]
  - Anger [Recovering/Resolving]
  - Agitation [Recovering/Resolving]
  - Stress [Unknown]
  - Aggression [Unknown]

NARRATIVE: CASE EVENT DATE: 20220201
